FAERS Safety Report 9822352 (Version 1)
Quarter: 2014Q1

REPORT INFORMATION
  Report Type: Spontaneous
  Country: DE (occurrence: DE)
  Receive Date: 20140116
  Receipt Date: 20140116
  Transmission Date: 20141002
  Serious: Yes (Life-Threatening, Other)
  Sender: FDA-Public Use
  Company Number: DE-JNJFOC-20140104932

PATIENT
  Age: 52 Year
  Sex: Male

DRUGS (7)
  1. DOXORUBICIN [Suspect]
     Indication: PLASMABLASTIC LYMPHOMA
     Dosage: DAY 1, 5 CYCLES
     Route: 042
  2. BORTEZOMIB [Suspect]
     Indication: PLASMABLASTIC LYMPHOMA
     Dosage: DAY 4, 5 CYCLES
     Route: 042
  3. CYCLOPHOSPHAMIDE [Suspect]
     Indication: PLASMABLASTIC LYMPHOMA
     Dosage: DAY 1, 5 CYCLES
     Route: 042
  4. VINCRISTINE [Suspect]
     Indication: PLASMABLASTIC LYMPHOMA
     Dosage: DAY 1, 5 CYCLES
     Route: 042
  5. PREDNISONE [Suspect]
     Indication: PLASMABLASTIC LYMPHOMA
     Dosage: DAY 1, 5 CYCLES
     Route: 042
  6. ANTIRETROVIRALS (NOS) [Suspect]
     Indication: HIV INFECTION
     Route: 065
  7. GRANULOCYTE COLONY-STIMULATING FACTOR [Concomitant]
     Route: 065

REACTIONS (7)
  - Leukopenia [Unknown]
  - Thrombocytopenia [Unknown]
  - Liver disorder [Unknown]
  - Diarrhoea [Unknown]
  - Peripheral sensory neuropathy [Unknown]
  - Cachexia [Unknown]
  - Fatigue [Unknown]
